FAERS Safety Report 6271097-1 (Version None)
Quarter: 2009Q3

REPORT INFORMATION
  Report Type: 
  Country: None (occurrence: None)
  Receive Date: 20090716
  Receipt Date: 20090710
  Transmission Date: 20100115
  Serious: Yes (Disabling)
  Sender: FDA-Public Use
  Company Number: BR-MERCK-0907BRA00034

PATIENT
  Age: 46 Year
  Sex: Female
  Weight: 80 kg

DRUGS (3)
  1. JANUVIA [Suspect]
     Indication: DIABETES MELLITUS
     Route: 048
     Dates: start: 20090301, end: 20090701
  2. JANUVIA [Suspect]
     Route: 048
     Dates: start: 20090701, end: 20090706
  3. LEVOTHYROXINE SODIUM [Concomitant]
     Route: 065
     Dates: start: 19970101

REACTIONS (1)
  - BACK PAIN [None]
